FAERS Safety Report 22350822 (Version 1)
Quarter: 2023Q2

REPORT INFORMATION
  Report Type: Spontaneous
  Country: FR (occurrence: FR)
  Receive Date: 20230522
  Receipt Date: 20230522
  Transmission Date: 20230722
  Serious: Yes (Other)
  Sender: FDA-Public Use
  Company Number: None

PATIENT
  Age: 40 Year
  Sex: Female
  Weight: 49 kg

DRUGS (1)
  1. HULIO [Suspect]
     Active Substance: ADALIMUMAB-FKJP
     Indication: Crohn^s disease
     Dosage: 160 MG 1ST TIME, 80 MG 2ND TIME, THEN 40 MG Q2W
     Route: 058
     Dates: start: 20221116, end: 20230308

REACTIONS (10)
  - Depression [Recovering/Resolving]
  - Dermatitis atopic [Recovering/Resolving]
  - Myalgia [Recovering/Resolving]
  - Arthralgia [Recovering/Resolving]
  - Feeling abnormal [Recovering/Resolving]
  - Epistaxis [Recovering/Resolving]
  - Swelling of eyelid [Recovering/Resolving]
  - Diffuse alopecia [Recovering/Resolving]
  - Fatigue [Recovering/Resolving]
  - Dry skin [Recovering/Resolving]

NARRATIVE: CASE EVENT DATE: 20221116
